FAERS Safety Report 9984133 (Version 2)
Quarter: 2014Q1

REPORT INFORMATION
  Report Type: Report from Study
  Country: US (occurrence: US)
  Receive Date: 20140307
  Receipt Date: 20140307
  Transmission Date: 20141002
  Serious: No
  Sender: FDA-Public Use
  Company Number: US-ABBVIE-13P-163-1175199-00

PATIENT
  Age: 82 Year
  Sex: Female

DRUGS (25)
  1. PROAIR [Concomitant]
     Indication: ASTHMA
  2. FLOVENT [Concomitant]
     Indication: ASTHMA
     Dosage: 2 PUFFS AT NIGHT
  3. VITAMIN D [Concomitant]
     Indication: VITAMIN SUPPLEMENTATION
  4. ATORVASTATIN [Concomitant]
     Indication: BLOOD CHOLESTEROL
  5. CALCIUM [Concomitant]
     Indication: PRODUCT USED FOR UNKNOWN INDICATION
  6. LIPITOR [Concomitant]
     Indication: PRODUCT USED FOR UNKNOWN INDICATION
  7. HUMIRA [Suspect]
     Indication: RHEUMATOID ARTHRITIS
     Route: 058
     Dates: start: 20131113
  8. CENTRUM SILVER [Concomitant]
     Indication: VITAMIN SUPPLEMENTATION
  9. LUMIGAN [Concomitant]
     Indication: UVEITIS
     Dosage: BED TIME
  10. AMLODIPINE [Concomitant]
     Indication: BLOOD PRESSURE
  11. BENAZEPRIL [Concomitant]
     Indication: BLOOD PRESSURE
  12. GLIPIZIDE [Concomitant]
     Indication: DIABETES MELLITUS
  13. RANITIDINE [Concomitant]
     Indication: GASTROOESOPHAGEAL REFLUX DISEASE
  14. CLONIDINE [Concomitant]
     Indication: HYPERHIDROSIS
     Dosage: AT BEDTIME
  15. ASPIRIN [Concomitant]
     Indication: ANTICOAGULANT THERAPY
  16. ALBUTEROL [Concomitant]
     Indication: PRODUCT USED FOR UNKNOWN INDICATION
  17. MECLIZINE [Concomitant]
     Indication: VERTIGO
  18. CALCIUM VITAMIN D [Concomitant]
     Indication: VITAMIN SUPPLEMENTATION
     Dosage: CALCIUM600MG PULS D TWO DAILY AS SUPPLEMENT
  19. KETOROLAC [Concomitant]
     Indication: GLAUCOMA
     Dosage: ONE DROP FOR EACH EYE
  20. LOTEMAX [Concomitant]
     Indication: GLAUCOMA
     Dosage: BOTH EYE ONE DROP
  21. OMEPRAZOLE [Concomitant]
     Indication: GASTROOESOPHAGEAL REFLUX DISEASE
  22. VITAMIN B-1 [Concomitant]
     Indication: VITAMIN SUPPLEMENTATION
  23. CLONAZEPAM [Concomitant]
     Indication: MUSCLE SPASMS
  24. CLONAZEPAM [Concomitant]
     Indication: PARAESTHESIA
  25. PROAIR [Concomitant]
     Indication: WHEEZING

REACTIONS (5)
  - Injection site rash [Not Recovered/Not Resolved]
  - Injection site pain [Unknown]
  - Injection site erythema [Not Recovered/Not Resolved]
  - Injection site pruritus [Not Recovered/Not Resolved]
  - Injection site erythema [Not Recovered/Not Resolved]
